FAERS Safety Report 21393880 (Version 2)
Quarter: 2022Q4

REPORT INFORMATION
  Report Type: Report from Study
  Country: US (occurrence: US)
  Receive Date: 20220930
  Receipt Date: 20221207
  Transmission Date: 20230113
  Serious: Yes (Other)
  Sender: FDA-Public Use
  Company Number: US-BoehringerIngelheim-2022-BI-183057

PATIENT
  Age: 75 Year
  Sex: Female
  Weight: 82 kg

DRUGS (2)
  1. OFEV [Suspect]
     Active Substance: NINTEDANIB
     Indication: Idiopathic pulmonary fibrosis
     Route: 048
     Dates: start: 20220709
  2. OFEV [Suspect]
     Active Substance: NINTEDANIB
     Route: 048
     Dates: start: 202207, end: 20220825

REACTIONS (12)
  - Dehydration [Recovering/Resolving]
  - Vomiting [Recovered/Resolved]
  - Asthenia [Recovering/Resolving]
  - Blood electrolytes decreased [Recovering/Resolving]
  - Headache [Recovered/Resolved]
  - Diarrhoea [Recovered/Resolved]
  - Abdominal pain upper [Recovered/Resolved]
  - Abnormal faeces [Not Recovered/Not Resolved]
  - Fatigue [Recovered/Resolved]
  - Diarrhoea [Recovered/Resolved with Sequelae]
  - Abdominal pain upper [Recovered/Resolved with Sequelae]
  - Adverse reaction [Unknown]

NARRATIVE: CASE EVENT DATE: 20220701
